FAERS Safety Report 14480977 (Version 1)
Quarter: 2018Q1

REPORT INFORMATION
  Report Type: Spontaneous
  Country: US (occurrence: US)
  Receive Date: 20180201
  Receipt Date: 20180201
  Transmission Date: 20180509
  Serious: Yes (Hospitalization)
  Sender: FDA-Public Use
  Company Number: None

PATIENT
  Age: 82 Year
  Sex: Female

DRUGS (2)
  1. SUCRALFATE. [Suspect]
     Active Substance: SUCRALFATE
  2. CALCITRIOL. [Suspect]
     Active Substance: CALCITRIOL

REACTIONS (4)
  - Osteomalacia [None]
  - Fall [None]
  - Multiple fractures [None]
  - Drug interaction [None]
